FAERS Safety Report 5410273-4 (Version None)
Quarter: 2007Q3

REPORT INFORMATION
  Report Type: 
  Country: None (occurrence: None)
  Receive Date: 20070808
  Receipt Date: 20070724
  Transmission Date: 20080115
  Serious: No
  Sender: FDA-Public Use
  Company Number: 2007S1005681

PATIENT
  Age: 48 Year
  Sex: Female
  Weight: 58.9676 kg

DRUGS (18)
  1. FENTANYL TRANSDERMAL SYSTEM [Suspect]
     Dosage: 25 UG/HR; EVERY 3 DAYS; TRANSDERMAL
     Route: 062
  2. SKELAXIN [Concomitant]
  3. ACTONEL [Concomitant]
  4. TOPAMAX [Concomitant]
  5. SPIRONOLACTONE [Concomitant]
  6. WELLBUTRIN XL [Concomitant]
  7. FLONASE [Concomitant]
  8. SYNTHROID [Concomitant]
  9. ZETIA [Concomitant]
  10. PHENERGAN HCL [Concomitant]
  11. XANAX XR [Concomitant]
  12. NEURONTIN [Concomitant]
  13. LUNESTA [Concomitant]
  14. VALTREX [Concomitant]
  15. CENTRUM [Concomitant]
  16. CALTRATE 600 + D [Concomitant]
  17. FISH OIL [Concomitant]
  18. BENADRYL [Concomitant]

REACTIONS (5)
  - ACCIDENTAL EXPOSURE [None]
  - CONJUNCTIVITIS [None]
  - CORNEAL ABRASION [None]
  - FOREIGN BODY IN EYE [None]
  - KERATITIS [None]
